FAERS Safety Report 8451796-3 (Version None)
Quarter: 2012Q2

REPORT INFORMATION
  Report Type: 
  Country: None (occurrence: None)
  Receive Date: 20120620
  Receipt Date: 20120619
  Transmission Date: 20120825
  Serious: Yes (Other)
  Sender: FDA-Public Use
  Company Number: CN-ROCHE-1080022

PATIENT
  Sex: Female

DRUGS (4)
  1. XELODA [Suspect]
     Route: 048
     Dates: start: 20120501, end: 20120101
  2. XELODA [Suspect]
     Indication: BREAST CANCER
     Route: 048
     Dates: start: 20090601
  3. XELODA [Suspect]
     Route: 048
     Dates: start: 20100101
  4. XELODA [Suspect]
     Route: 048
     Dates: start: 20120101

REACTIONS (2)
  - METASTASES TO LYMPH NODES [None]
  - ABDOMINAL PAIN UPPER [None]
